FAERS Safety Report 6141133-1 (Version None)
Quarter: 2009Q2

REPORT INFORMATION
  Report Type: 
  Country: None (occurrence: None)
  Receive Date: 20090401
  Receipt Date: 20090401
  Transmission Date: 20091009
  Serious: Yes (Life-Threatening, Hospitalization)
  Sender: FDA-Public Use
  Company Number: None

PATIENT
  Age: 72 Year
  Sex: Male
  Weight: 74.4 kg

DRUGS (2)
  1. CLINDAMYCIN HCL [Suspect]
     Indication: TINEA INFECTION
     Dosage: 300 MG QID PO
     Route: 048
     Dates: start: 20090130, end: 20090218
  2. CIPROFLOXACIN [Suspect]
     Indication: TINEA INFECTION
     Dosage: 500 MG BID PO
     Route: 048
     Dates: start: 20090130, end: 20090218

REACTIONS (2)
  - GASTRIC ULCER HAEMORRHAGE [None]
  - PEPTIC ULCER HAEMORRHAGE [None]
